FAERS Safety Report 7060615-1 (Version None)
Quarter: 2010Q4

REPORT INFORMATION
  Report Type: 
  Country: None (occurrence: None)
  Receive Date: 20101025
  Receipt Date: 20101014
  Transmission Date: 20110411
  Serious: Yes (Hospitalization, Other)
  Sender: FDA-Public Use
  Company Number: US-ELI_LILLY_AND_COMPANY-US201010003613

PATIENT
  Sex: Male
  Weight: 76.644 kg

DRUGS (10)
  1. BYETTA [Suspect]
     Indication: TYPE 2 DIABETES MELLITUS
     Dosage: 5 UG, 2/D
     Route: 058
  2. LANTUS [Concomitant]
     Indication: TYPE 2 DIABETES MELLITUS
     Dosage: UNK, EACH EVENING
  3. METFORMIN [Concomitant]
     Indication: TYPE 2 DIABETES MELLITUS
     Dosage: 850 MG, 2/D
  4. SIMVASTATIN [Concomitant]
     Dosage: 20 MG, EACH EVENING
  5. NAMENDA [Concomitant]
     Indication: DEMENTIA
     Dosage: 5 MG, 2/D
     Dates: start: 20090701
  6. LISINOPRIL [Concomitant]
     Indication: BLOOD PRESSURE
     Dosage: 20 MG, DAILY (1/D)
  7. ASPIRIN [Concomitant]
     Dosage: 325 MG, EACH MORNING
  8. AVODART [Concomitant]
     Indication: PROSTATE CANCER
     Dosage: 5 MG, DAILY (1/D)
  9. ATENOLOL [Concomitant]
     Indication: BLOOD PRESSURE
     Dosage: 25 MG, EACH MORNING
  10. LUPRON [Concomitant]
     Indication: BLADDER CANCER
     Dosage: UNK, MONTHLY (1/M)
     Route: 058

REACTIONS (7)
  - CEREBROVASCULAR ACCIDENT [None]
  - COUGH [None]
  - DEMENTIA [None]
  - HEART RATE IRREGULAR [None]
  - OFF LABEL USE [None]
  - PULMONARY CONGESTION [None]
  - PYREXIA [None]
